FAERS Safety Report 5954977-3 (Version None)
Quarter: 2008Q4

REPORT INFORMATION
  Report Type: 
  Country: None (occurrence: None)
  Receive Date: 20081031
  Receipt Date: 20080701
  Transmission Date: 20090506
  Serious: No
  Sender: FDA-Public Use
  Company Number: 2008PV035977

PATIENT
  Sex: Female

DRUGS (1)
  1. SYMLIN [Suspect]
     Indication: DRUG USE FOR UNKNOWN INDICATION
     Dosage: 15 MCG; SC
     Route: 058
     Dates: start: 20080630

REACTIONS (3)
  - DIZZINESS [None]
  - FEELING HOT [None]
  - PARAESTHESIA [None]
